FAERS Safety Report 8520599-3 (Version None)
Quarter: 2012Q3

REPORT INFORMATION
  Report Type: 
  Country: None (occurrence: None)
  Receive Date: 20120719
  Receipt Date: 20120712
  Transmission Date: 20120928
  Serious: Yes (Hospitalization)
  Sender: FDA-Public Use
  Company Number: FR-PFIZER INC-2012167383

PATIENT
  Age: 79 Year
  Sex: Female

DRUGS (5)
  1. NEORECORMON ^BOEHRINGER MANNHEIM^ [Concomitant]
     Indication: ANAEMIA
     Dosage: 20000 IU, WEEKLY
     Route: 058
  2. LYRICA [Suspect]
     Indication: ANXIETY
     Dosage: UNK
     Route: 048
     Dates: start: 20120502, end: 20120516
  3. LEVOTHYROXINE SODIUM [Concomitant]
     Indication: HYPOTHYROIDISM
     Dosage: 75 UG, 1X/DAY
     Route: 048
  4. VELCADE [Concomitant]
     Indication: MULTIPLE MYELOMA
     Dosage: UNK
     Route: 042
     Dates: start: 20120301, end: 20120501
  5. DEXAMETHASONE ACETATE [Concomitant]
     Indication: MULTIPLE MYELOMA
     Dosage: UNK
     Route: 042
     Dates: start: 20120301, end: 20120501

REACTIONS (3)
  - NERVOUS SYSTEM DISORDER [None]
  - CONFUSIONAL STATE [None]
  - DISTURBANCE IN ATTENTION [None]
